FAERS Safety Report 4999206-2 (Version None)
Quarter: 2006Q2

REPORT INFORMATION
  Report Type: 
  Country: None (occurrence: None)
  Receive Date: 20060509
  Receipt Date: 20060509
  Transmission Date: 20061013
  Serious: Yes (Hospitalization)
  Sender: FDA-Public Use
  Company Number: None

PATIENT
  Age: 49 Year
  Sex: Male
  Weight: 86.1834 kg

DRUGS (3)
  1. TARGRATIN  75 MG  LIGAND [Suspect]
     Indication: METASTASIS
     Dosage: 11 CAPS QD PO
     Route: 048
     Dates: start: 20060303, end: 20060410
  2. TARGRATIN  75 MG  LIGAND [Suspect]
     Indication: THYMOMA
     Dosage: 11 CAPS QD PO
     Route: 048
     Dates: start: 20060303, end: 20060410
  3. TAXOTERE [Suspect]
     Dosage: 35MG/M2 = 73.5 MG Q WEEK X 3/4 WEEK IV DRIP
     Route: 041
     Dates: start: 20060303, end: 20060407

REACTIONS (5)
  - ASTHENIA [None]
  - CHEST WALL OPERATION [None]
  - INTERVERTEBRAL DISC DISPLACEMENT [None]
  - MASS [None]
  - SPINAL CORD COMPRESSION [None]
